FAERS Safety Report 23285604 (Version 1)
Quarter: 2023Q4

REPORT INFORMATION
  Report Type: Spontaneous
  Country: US (occurrence: None)
  Receive Date: 20231211
  Receipt Date: 20231211
  Transmission Date: 20240109
  Serious: No
  Sender: FDA-Public Use
  Company Number: None

PATIENT
  Age: 40 Year
  Sex: Female

DRUGS (1)
  1. HUMIRA [Suspect]
     Active Substance: ADALIMUMAB
     Indication: Hidradenitis
     Dosage: OTHER FREQUENCY : WKLYROTATINGINJECT;?
     Route: 058
     Dates: start: 202308

REACTIONS (3)
  - Drug ineffective [None]
  - Injection site reaction [None]
  - Gait disturbance [None]
